FAERS Safety Report 5781473-9 (Version None)
Quarter: 2008Q2

REPORT INFORMATION
  Report Type: 
  Country: None (occurrence: None)
  Receive Date: 20080623
  Receipt Date: 20070529
  Transmission Date: 20081010
  Serious: No
  Sender: FDA-Public Use
  Company Number: US-ASTRAZENECA-2007UW13067

PATIENT
  Age: 64 Year
  Sex: Female
  Weight: 56.7 kg

DRUGS (1)
  1. ENTOCORT EC [Suspect]
     Route: 048
     Dates: start: 20061201, end: 20070501

REACTIONS (6)
  - FATIGUE [None]
  - HYPERTENSION [None]
  - NASAL OEDEMA [None]
  - RHINITIS [None]
  - TREMOR [None]
  - VISUAL ACUITY REDUCED [None]
